FAERS Safety Report 4915702-8 (Version None)
Quarter: 2006Q1

REPORT INFORMATION
  Report Type: 
  Country: None (occurrence: None)
  Receive Date: 20060213
  Receipt Date: 20060126
  Transmission Date: 20060701
  Serious: Yes (Hospitalization, Other)
  Sender: FDA-Public Use
  Company Number: 2006019010

PATIENT
  Age: 36 Year
  Sex: Female
  Weight: 54 kg

DRUGS (1)
  1. CABERGOLINE [Suspect]
     Indication: PROLACTIN-PRODUCING PITUITARY TUMOUR
     Dosage: ORAL
     Route: 048
     Dates: start: 20050201

REACTIONS (9)
  - ABDOMINAL PAIN LOWER [None]
  - BLOOD PRESSURE DIASTOLIC DECREASED [None]
  - CAROTID BRUIT [None]
  - ENDOMETRIAL CANCER [None]
  - HYPOCHROMIC ANAEMIA [None]
  - IRON DEFICIENCY ANAEMIA [None]
  - MALIGNANT NEOPLASM PROGRESSION [None]
  - MENORRHAGIA [None]
  - METRORRHAGIA [None]
